FAERS Safety Report 4929231-9 (Version None)
Quarter: 2006Q1

REPORT INFORMATION
  Report Type: 
  Country: None (occurrence: None)
  Receive Date: 20060130
  Receipt Date: 20050510
  Transmission Date: 20060701
  Serious: Yes (Hospitalization)
  Sender: FDA-Public Use
  Company Number: 05P-163-0297310-00

PATIENT
  Age: 3 Year
  Sex: Female
  Weight: 15.8759 kg

DRUGS (2)
  1. OMNICEF [Suspect]
     Indication: TONSILLITIS
     Dosage: 0.75 TEASPOON, 2 IN 1 D, PER ORAL
     Route: 048
     Dates: start: 20050301
  2. IBUPROFEN [Concomitant]

REACTIONS (3)
  - MYALGIA [None]
  - PYREXIA [None]
  - RHABDOMYOLYSIS [None]
